FAERS Safety Report 6563749-0 (Version None)
Quarter: 2010Q1

REPORT INFORMATION
  Report Type: 
  Country: None (occurrence: None)
  Receive Date: 20100130
  Receipt Date: 20091228
  Transmission Date: 20100710
  Serious: Yes (Other)
  Sender: FDA-Public Use
  Company Number: US-ABBOTT-09P-163-0616217-00

PATIENT
  Sex: Female
  Weight: 67.192 kg

DRUGS (2)
  1. HUMIRA [Suspect]
     Indication: PSORIASIS
     Dosage: DAY 1
     Dates: start: 20091223
  2. ORTHO-NOVUM 7/7/7-21 [Concomitant]
     Indication: ORAL CONTRACEPTION

REACTIONS (13)
  - ABDOMINAL DISTENSION [None]
  - ABDOMINAL PAIN [None]
  - BOWEL MOVEMENT IRREGULARITY [None]
  - BURNING SENSATION [None]
  - DIARRHOEA [None]
  - DYSPNOEA [None]
  - INJECTION SITE HAEMATOMA [None]
  - MENSTRUAL DISORDER [None]
  - NAUSEA [None]
  - OVARIAN DISORDER [None]
  - PAIN IN EXTREMITY [None]
  - SENSORY DISTURBANCE [None]
  - SWELLING FACE [None]
